FAERS Safety Report 4612294-8 (Version None)
Quarter: 2005Q1

REPORT INFORMATION
  Report Type: 
  Country: None (occurrence: None)
  Receive Date: 20050316
  Receipt Date: 20050308
  Transmission Date: 20050727
  Serious: Yes (Hospitalization)
  Sender: FDA-Public Use
  Company Number: 200415277BCC

PATIENT
  Age: 17 Year
  Sex: Female
  Weight: 54.4316 kg

DRUGS (2)
  1. MIDOL MAXIMUM STRENGTH CAPLETS [Suspect]
     Dosage: SEE IMAGE
     Route: 048
     Dates: start: 20041101
  2. MIDOL MAXIMUM STRENGTH CAPLETS [Suspect]
     Dosage: SEE IMAGE
     Route: 048
     Dates: start: 20041101

REACTIONS (3)
  - INTENTIONAL MISUSE [None]
  - TREMOR [None]
  - VOMITING [None]
